FAERS Safety Report 8344427-4 (Version None)
Quarter: 2012Q2

REPORT INFORMATION
  Report Type: 
  Country: None (occurrence: None)
  Receive Date: 20120508
  Receipt Date: 20120503
  Transmission Date: 20120825
  Serious: Yes (Other)
  Sender: FDA-Public Use
  Company Number: US-BAYER-201016531NA

PATIENT
  Age: 33 Year
  Sex: Female
  Weight: 52 kg

DRUGS (8)
  1. WELLBUTRIN XL [Concomitant]
     Dosage: 150 MG, UNK
  2. CLONAZEPAM [Concomitant]
  3. FLUOXETINE [Concomitant]
  4. BUPROPION HYDROCHLORIDE [Concomitant]
     Dosage: 150 MG, UNK
  5. DICYCLOMINE [Concomitant]
  6. TRAZODONE HCL [Concomitant]
     Dosage: 50 MG, UNK
  7. MAXALT-MLT [Concomitant]
     Dosage: 10 MG, UNK
  8. YASMIN [Suspect]
     Indication: CONTRACEPTION
     Dosage: UNK
     Route: 048
     Dates: start: 20020101, end: 20080101

REACTIONS (8)
  - GALLBLADDER DISORDER [None]
  - WEIGHT DECREASED [None]
  - CHOLECYSTITIS CHRONIC [None]
  - ABDOMINAL PAIN [None]
  - DIARRHOEA [None]
  - PAIN [None]
  - ANXIETY [None]
  - CHOLELITHIASIS [None]
